FAERS Safety Report 6235991-X (Version None)
Quarter: 2009Q2

REPORT INFORMATION
  Report Type: 
  Country: None (occurrence: None)
  Receive Date: 20090619
  Receipt Date: 20090611
  Transmission Date: 20091009
  Serious: Yes (Other)
  Sender: FDA-Public Use
  Company Number: US-BAYER-200923407NA

PATIENT
  Sex: Female
  Weight: 74 kg

DRUGS (1)
  1. ULTRAVIST 370 [Suspect]
     Indication: COMPUTERISED TOMOGRAM THORAX
     Dosage: TOTAL DAILY DOSE: 140 ML  UNIT DOSE: 150 ML
     Route: 042

REACTIONS (4)
  - BLINDNESS [None]
  - ERYTHEMA [None]
  - HYPOAESTHESIA FACIAL [None]
  - PERIORBITAL OEDEMA [None]
